FAERS Safety Report 25662917 (Version 1)
Quarter: 2025Q3

REPORT INFORMATION
  Report Type: Spontaneous
  Country: US (occurrence: US)
  Receive Date: 20250811
  Receipt Date: 20250811
  Transmission Date: 20251020
  Serious: No
  Sender: JOHNSON AND JOHNSON
  Company Number: US-JNJFOC-20250808757

PATIENT
  Sex: Female

DRUGS (1)
  1. TREMFYA [Suspect]
     Active Substance: GUSELKUMAB
     Indication: Colitis ulcerative
     Route: 042

REACTIONS (5)
  - Infusion related reaction [Unknown]
  - Dyspnoea [Unknown]
  - Chest discomfort [Unknown]
  - Hyperhidrosis [Unknown]
  - Blood glucose decreased [Unknown]
